FAERS Safety Report 21577339 (Version 1)
Quarter: 2022Q4

REPORT INFORMATION
  Report Type: Report from Study
  Country: US (occurrence: US)
  Receive Date: 20221110
  Receipt Date: 20221110
  Transmission Date: 20230113
  Serious: Yes (Other)
  Sender: FDA-Public Use
  Company Number: US-ABBVIE-4194105

PATIENT
  Sex: Male

DRUGS (1)
  1. HUMIRA [Suspect]
     Active Substance: ADALIMUMAB
     Indication: Rheumatoid arthritis
     Route: 058

REACTIONS (5)
  - Surgery [Recovering/Resolving]
  - Joint stiffness [Unknown]
  - Rhinorrhoea [Not Recovered/Not Resolved]
  - Pain [Unknown]
  - Sinus headache [Not Recovered/Not Resolved]
